FAERS Safety Report 19872292 (Version 1)
Quarter: 2021Q3

REPORT INFORMATION
  Report Type: Spontaneous
  Country: US (occurrence: US)
  Receive Date: 20210921
  Receipt Date: 20210921
  Transmission Date: 20211014
  Serious: Yes (Hospitalization)
  Sender: FDA-Public Use
  Company Number: None

PATIENT
  Sex: Female

DRUGS (1)
  1. BETHKIS [Suspect]
     Active Substance: TOBRAMYCIN
     Indication: CYSTIC FIBROSIS
     Dosage: ?          OTHER DOSE:300 MG/4ML; INHALE 4 ML (300 MG) VIA NEBULIZIER TWO TIMES DAILY FOR 28 DAYS ON AND 28 DAYS OFF?
     Route: 055
     Dates: start: 20210115

REACTIONS (1)
  - Sepsis [None]
